FAERS Safety Report 9776930 (Version 2)
Quarter: 2014Q2

REPORT INFORMATION
  Report Type: Report from Study
  Country: US (occurrence: US)
  Receive Date: 20131221
  Receipt Date: 20140416
  Transmission Date: 20141212
  Serious: Yes (Other)
  Sender: FDA-Public Use
  Company Number: US-ROCHE-1317385

PATIENT
  Sex: 0

DRUGS (6)
  1. RIBAVIRIN [Suspect]
     Indication: CHRONIC HEPATITIS C
     Route: 065
  2. PEG-INTERFERON ALFA 2A [Suspect]
     Indication: CHRONIC HEPATITIS C
     Route: 065
  3. PEG-INTERFERON LAMBDA [Suspect]
     Indication: CHRONIC HEPATITIS B
     Route: 065
  4. PEG-INTERFERON LAMBDA [Suspect]
     Indication: CHRONIC HEPATITIS C
  5. DACLATASVIR [Suspect]
     Indication: CHRONIC HEPATITIS C
     Route: 065
  6. ASUNAPREVIR [Suspect]
     Indication: CHRONIC HEPATITIS C
     Route: 065

REACTIONS (8)
  - Alanine aminotransferase increased [Unknown]
  - Blood bilirubin increased [Unknown]
  - Aspartate aminotransferase increased [Unknown]
  - Haemoglobin abnormal [Unknown]
  - White blood cell disorder [Unknown]
  - Lymphocyte count abnormal [Unknown]
  - Platelet disorder [Unknown]
  - Neutrophil count abnormal [Unknown]
